FAERS Safety Report 20523966 (Version 3)
Quarter: 2022Q1

REPORT INFORMATION
  Report Type: Report from Study
  Country: IN (occurrence: IN)
  Receive Date: 20220228
  Receipt Date: 20220302
  Transmission Date: 20220423
  Serious: Yes (Hospitalization, Disabling)
  Sender: FDA-Public Use
  Company Number: IN-BoehringerIngelheim-2022-BI-155148

PATIENT
  Age: 68 Year
  Sex: Male
  Weight: 55 kg

DRUGS (1)
  1. PRADAXA [Suspect]
     Active Substance: DABIGATRAN ETEXILATE MESYLATE
     Indication: Deep vein thrombosis
     Route: 048
     Dates: start: 20220112, end: 20220131

REACTIONS (1)
  - Venous occlusion [Recovered/Resolved]

NARRATIVE: CASE EVENT DATE: 20220131
